FAERS Safety Report 11029411 (Version 1)
Quarter: 2015Q2

REPORT INFORMATION
  Report Type: Spontaneous
  Country: US (occurrence: US)
  Receive Date: 20150415
  Receipt Date: 20150415
  Transmission Date: 20150821
  Serious: Yes (Death)
  Sender: FDA-Public Use
  Company Number: US-BAUSCH-BL-2015-011378

PATIENT
  Age: 81 Year
  Sex: Male
  Weight: 49.94 kg

DRUGS (1)
  1. XENAZINE [Suspect]
     Active Substance: TETRABENAZINE
     Indication: HUNTINGTON^S DISEASE
     Route: 048
     Dates: start: 20120918, end: 20150113

REACTIONS (1)
  - Huntington^s disease [Fatal]

NARRATIVE: CASE EVENT DATE: 20150113
